FAERS Safety Report 5370071-7 (Version None)
Quarter: 2007Q2

REPORT INFORMATION
  Report Type: 
  Country: None (occurrence: None)
  Receive Date: 20070615
  Receipt Date: 20070221
  Transmission Date: 20071010
  Serious: No
  Sender: FDA-Public Use
  Company Number: 2007014745

PATIENT
  Sex: Male

DRUGS (1)
  1. ERAXIS [Suspect]

REACTIONS (1)
  - POLLAKIURIA [None]
